FAERS Safety Report 12008087 (Version 1)
Quarter: 2016Q1

REPORT INFORMATION
  Report Type: Spontaneous
  Country: US (occurrence: None)
  Receive Date: 20160203
  Receipt Date: 20160203
  Transmission Date: 20160526
  Serious: Yes (Hospitalization)
  Sender: FDA-Public Use
  Company Number: None

PATIENT
  Age: 75 Year
  Sex: Male
  Weight: 70.26 kg

DRUGS (2)
  1. BEVACIZUMAB [Suspect]
     Active Substance: BEVACIZUMAB
     Indication: GLIOBLASTOMA
     Dosage: 10 MG/KG, DAYS 1 + 15, IV
     Dates: start: 20160107, end: 20160121
  2. TEMOZOLOMIDE. [Suspect]
     Active Substance: TEMOZOLOMIDE
     Indication: GLIOBLASTOMA
     Dosage: 140 MG, DAYS 1-21 ORAL, QD
     Dates: start: 20160121, end: 20160131

REACTIONS (3)
  - Constipation [None]
  - Confusional state [None]
  - Rectal haemorrhage [None]

NARRATIVE: CASE EVENT DATE: 20160131
